FAERS Safety Report 5785813-6 (Version None)
Quarter: 2008Q2

REPORT INFORMATION
  Report Type: 
  Country: None (occurrence: None)
  Receive Date: 20080605
  Receipt Date: 20080508
  Transmission Date: 20081010
  Serious: No
  Sender: FDA-Public Use
  Company Number: A0711553A

PATIENT

DRUGS (2)
  1. ALLI [Suspect]
     Indication: DRUG USE FOR UNKNOWN INDICATION
     Dates: start: 20080201
  2. HYDROCHLOROTHIAZIDE [Concomitant]

REACTIONS (5)
  - CHANGE OF BOWEL HABIT [None]
  - CHAPPED LIPS [None]
  - CONSTIPATION [None]
  - DRY SKIN [None]
  - FLATULENCE [None]
